FAERS Safety Report 5796779-7 (Version None)
Quarter: 2008Q3

REPORT INFORMATION
  Report Type: 
  Country: None (occurrence: None)
  Receive Date: 20080701
  Receipt Date: 20080624
  Transmission Date: 20090109
  Serious: Yes (Hospitalization)
  Sender: FDA-Public Use
  Company Number: CA-ASTRAZENECA-2008UW12859

PATIENT
  Sex: Male

DRUGS (1)
  1. LOSEC I.V. [Suspect]
     Route: 048
     Dates: start: 20060101

REACTIONS (3)
  - ABDOMINAL PAIN UPPER [None]
  - ANEURYSM [None]
  - FLATULENCE [None]
